FAERS Safety Report 22270355 (Version 10)
Quarter: 2024Q4

REPORT INFORMATION
  Report Type: Spontaneous
  Country: US (occurrence: US)
  Receive Date: 20230501
  Receipt Date: 20241210
  Transmission Date: 20250115
  Serious: Yes (Hospitalization)
  Sender: PFIZER
  Company Number: US-PFIZER INC-PV202300076125

PATIENT
  Age: 89 Year
  Sex: Female
  Weight: 75.102 kg

DRUGS (1)
  1. IBRANCE [Suspect]
     Active Substance: PALBOCICLIB
     Indication: Breast cancer female
     Dosage: 1 TABLET DAILY ON DAYS 1-21 , 7 DAYS OFF, REPEATED EVERY 28 DAYS)
     Route: 048

REACTIONS (3)
  - Wound [Unknown]
  - COVID-19 [Unknown]
  - Fall [Unknown]

NARRATIVE: CASE EVENT DATE: 20240101
